FAERS Safety Report 7276737-6 (Version None)
Quarter: 2011Q1

REPORT INFORMATION
  Report Type: 
  Country: None (occurrence: None)
  Receive Date: 20110204
  Receipt Date: 20110202
  Transmission Date: 20110831
  Serious: Yes (Death)
  Sender: FDA-Public Use
  Company Number: GB-PFIZER INC-2011024524

PATIENT
  Age: 35 Year
  Sex: Male

DRUGS (6)
  1. VENLAFAXINE HCL [Suspect]
     Indication: DEPRESSION
     Dosage: 225 MG, UNK
     Route: 048
     Dates: end: 20101025
  2. ETOPAN [Concomitant]
  3. MULTI-VITAMINS [Concomitant]
  4. CLOZAPINE [Suspect]
     Indication: PSYCHOTIC DISORDER
     Dosage: UNK
     Route: 048
     Dates: start: 20060101, end: 20101225
  5. DIAZEPAM [Concomitant]
  6. EPILIM CHRONO [Suspect]
     Indication: PROPHYLAXIS
     Dosage: 600 MG, UNK
     Route: 048
     Dates: start: 20091101, end: 20101225

REACTIONS (1)
  - PNEUMONIA [None]
